FAERS Safety Report 10965952 (Version 4)
Quarter: 2015Q3

REPORT INFORMATION
  Report Type: Report from Study
  Country: JP (occurrence: JP)
  Receive Date: 20150330
  Receipt Date: 20150716
  Transmission Date: 20151125
  Serious: Yes (Life-Threatening, Other)
  Sender: FDA-Public Use
  Company Number: JP-AMGEN-JPNCT2014011940

PATIENT
  Age: 82 Year
  Sex: Female
  Weight: 42 kg

DRUGS (21)
  1. PURSENNIDE                         /00571901/ [Concomitant]
     Dosage: UNK
     Route: 048
  2. GASMOTIN [Concomitant]
     Active Substance: MOSAPRIDE CITRATE
     Dosage: UNK
     Route: 048
  3. PARIET [Concomitant]
     Active Substance: RABEPRAZOLE SODIUM
     Dosage: UNK
     Route: 048
  4. FAMOTIDINE. [Concomitant]
     Active Substance: FAMOTIDINE
     Dosage: UNK
     Route: 065
  5. PROMAC                             /00024401/ [Concomitant]
     Active Substance: NITROFURANTOIN
     Dosage: UNK
     Route: 048
  6. ZOSYN [Concomitant]
     Active Substance: PIPERACILLIN SODIUM\TAZOBACTAM SODIUM
     Dosage: UNK
     Route: 065
  7. RIVASTACH [Concomitant]
     Active Substance: RIVASTIGMINE
     Indication: DEMENTIA
     Dosage: UNK
     Route: 062
  8. LASIX [Concomitant]
     Active Substance: FUROSEMIDE
     Dosage: UNK
     Route: 048
  9. CABASER [Suspect]
     Active Substance: CABERGOLINE
     Indication: PRODUCT USED FOR UNKNOWN INDICATION
     Dosage: UNK
     Route: 048
  10. ZYLORIC [Concomitant]
     Active Substance: ALLOPURINOL
     Dosage: UNK
     Route: 048
  11. JUSO [Concomitant]
     Dosage: UNK
     Route: 048
  12. AMLODIPINE [Concomitant]
     Active Substance: AMLODIPINE BESYLATE
     Dosage: UNK
     Route: 048
  13. MEVALOTIN [Concomitant]
     Active Substance: PRAVASTATIN SODIUM
     Dosage: UNK
     Route: 048
  14. VESICARE [Concomitant]
     Active Substance: SOLIFENACIN SUCCINATE
     Dosage: UNK
     Route: 048
  15. DARBEPOETIN ALFA - KHK [Suspect]
     Active Substance: DARBEPOETIN ALFA
     Indication: NEPHROGENIC ANAEMIA
     Dosage: 90 MUG, QD
     Route: 058
     Dates: start: 20110728
  16. DONEPEZIL HYDROCHLORIDE. [Concomitant]
     Active Substance: DONEPEZIL HYDROCHLORIDE
     Dosage: UNK
     Route: 048
  17. MENESIT [Concomitant]
     Active Substance: CARBIDOPA\LEVODOPA
     Indication: GLOMERULONEPHRITIS CHRONIC
     Dosage: UNK
     Route: 048
  18. GRANDAXIN [Concomitant]
     Active Substance: TOFISOPAM
     Dosage: UNK
     Route: 048
  19. DOPASTON [Concomitant]
     Active Substance: LEVODOPA
     Indication: GLOMERULONEPHRITIS CHRONIC
     Dosage: UNK
     Route: 065
  20. CEFTRIAXONE NA [Concomitant]
     Active Substance: CEFTRIAXONE
     Dosage: UNK
     Route: 065
  21. FOSAMAC [Concomitant]
     Active Substance: ALENDRONATE SODIUM
     Dosage: 35 MG, UNK
     Route: 048

REACTIONS (11)
  - Disorientation [Recovering/Resolving]
  - Pyelonephritis acute [Recovering/Resolving]
  - Gastric cancer [Recovering/Resolving]
  - Neurogenic bladder [Recovering/Resolving]
  - Hallucination [Recovering/Resolving]
  - Constipation [Recovering/Resolving]
  - Dementia Alzheimer^s type [Unknown]
  - Hypertension [Not Recovered/Not Resolved]
  - Acute pulmonary oedema [Recovering/Resolving]
  - Delusion [Recovering/Resolving]
  - Metabolic acidosis [Recovering/Resolving]

NARRATIVE: CASE EVENT DATE: 20120614
